FAERS Safety Report 12192902 (Version 1)
Quarter: 2016Q1

REPORT INFORMATION
  Report Type: Report from Study
  Country: MX (occurrence: MX)
  Receive Date: 20160318
  Receipt Date: 20160318
  Transmission Date: 20160526
  Serious: Yes (Hospitalization)
  Sender: FDA-Public Use
  Company Number: MX-WATSON-2016-05823

PATIENT
  Age: 49 Year
  Sex: Female
  Weight: 88 kg

DRUGS (10)
  1. FOLIC ACID. [Concomitant]
     Active Substance: FOLIC ACID
     Indication: RHEUMATOID ARTHRITIS
     Dosage: 10 MG, 1/WEEK
     Route: 048
     Dates: start: 20091207
  2. SIMVASTATIN (UNKNOWN) [Suspect]
     Active Substance: SIMVASTATIN
     Indication: DYSLIPIDAEMIA
     Dosage: 60 MG, ONCE DAILY
     Route: 048
     Dates: start: 20120120
  3. ACETAMINOPHEN. [Concomitant]
     Active Substance: ACETAMINOPHEN
     Indication: RHEUMATOID ARTHRITIS
     Dosage: 500 MG, PRN
     Route: 048
     Dates: start: 20091207
  4. CALCIUM [Concomitant]
     Active Substance: CALCIUM
     Indication: PROPHYLAXIS
     Dosage: 500 MG, ONCE DAILY
     Route: 048
     Dates: start: 20100713
  5. EZETIMIBE (UNKNOWN) [Suspect]
     Active Substance: EZETIMIBE
     Indication: DYSLIPIDAEMIA
     Dosage: 30 MG, ONCE DAILY
     Route: 048
     Dates: start: 20110118
  6. TOFACITINIB CITRATE [Suspect]
     Active Substance: TOFACITINIB CITRATE
     Indication: RHEUMATOID ARTHRITIS
     Dosage: 5 MG, TWICE DAILY
     Route: 048
     Dates: start: 20091207
  7. PREDNISONE (UNKNOWN) [Suspect]
     Active Substance: PREDNISONE
     Indication: RHEUMATOID ARTHRITIS
     Dosage: 7.5 MG, ONCE DAILY
     Route: 048
     Dates: start: 20150406
  8. RANITIDINE [Concomitant]
     Active Substance: RANITIDINE\RANITIDINE HYDROCHLORIDE
     Indication: PROPHYLAXIS
     Dosage: 150 MG, PRN
     Route: 048
     Dates: start: 20091207
  9. BEZAFIBRATE (UNKNOWN) [Suspect]
     Active Substance: BEZAFIBRATE
     Indication: DYSLIPIDAEMIA
     Dosage: 600 MG, ONCE DAILY
     Route: 048
     Dates: start: 20120120
  10. METHOTREXATE [Concomitant]
     Active Substance: METHOTREXATE
     Indication: RHEUMATOID ARTHRITIS
     Dosage: 20 MG, 1/WEEK
     Route: 058
     Dates: start: 20140410

REACTIONS (1)
  - Tendon rupture [Recovered/Resolved]

NARRATIVE: CASE EVENT DATE: 20160221
